FAERS Safety Report 14416169 (Version 1)
Quarter: 2018Q1

REPORT INFORMATION
  Report Type: Spontaneous
  Country: PT (occurrence: PT)
  Receive Date: 20180122
  Receipt Date: 20180122
  Transmission Date: 20180509
  Serious: Yes (Other)
  Sender: FDA-Public Use
  Company Number: PT-AUROBINDO-AUR-APL-2018-002206

PATIENT
  Age: 66 Year
  Sex: Male

DRUGS (2)
  1. ROPIVACAINE SOLUTION FOR INJECTION [Suspect]
     Active Substance: ROPIVACAINE
     Dosage: 4 ML OF 0.2%
     Route: 008
  2. ROPIVACAINE SOLUTION FOR INJECTION [Suspect]
     Active Substance: ROPIVACAINE
     Indication: EPIDURAL ANAESTHESIA
     Dosage: 8ML OF 0.75%
     Route: 008

REACTIONS (3)
  - Paraparesis [Unknown]
  - Radiculopathy [Unknown]
  - Anal incontinence [Unknown]
